FAERS Safety Report 8489378-X (Version None)
Quarter: 2012Q2

REPORT INFORMATION
  Report Type: 
  Country: None (occurrence: None)
  Receive Date: 20120628
  Receipt Date: 20120628
  Transmission Date: 20120825
  Serious: Yes (Hospitalization)
  Sender: FDA-Public Use
  Company Number: None

PATIENT
  Age: 31 Year
  Sex: Male

DRUGS (1)
  1. MERCAPTOPURINE [Suspect]
     Indication: CROHN'S DISEASE
     Dosage: 150 MG DAILY PO
     Route: 048

REACTIONS (7)
  - VOMITING [None]
  - ABDOMINAL PAIN [None]
  - MYALGIA [None]
  - CROHN'S DISEASE [None]
  - PANCREATITIS [None]
  - CONDITION AGGRAVATED [None]
  - NAUSEA [None]
